FAERS Safety Report 23101244 (Version 1)
Quarter: 2023Q4

REPORT INFORMATION
  Report Type: Report from Study
  Country: AR (occurrence: None)
  Receive Date: 20231024
  Receipt Date: 20231024
  Transmission Date: 20240110
  Serious: Yes (Hospitalization, Other)
  Sender: FDA-Public Use
  Company Number: 2023A240087

PATIENT
  Age: 18511 Day
  Sex: Male

DRUGS (1)
  1. TAGRISSO [Suspect]
     Active Substance: OSIMERTINIB
     Indication: EGFR gene mutation
     Route: 048
     Dates: start: 20220930, end: 20230914

REACTIONS (9)
  - Peripheral ischaemia [Unknown]
  - Visual impairment [Unknown]
  - Brain injury [Unknown]
  - Pulmonary embolism [Unknown]
  - General physical health deterioration [Unknown]
  - Alopecia [Unknown]
  - Stomatitis [Unknown]
  - Eating disorder [Unknown]
  - Fatigue [Unknown]

NARRATIVE: CASE EVENT DATE: 20230911
